FAERS Safety Report 10438058 (Version 1)
Quarter: 2014Q3

REPORT INFORMATION
  Report Type: Spontaneous
  Country: US (occurrence: US)
  Receive Date: 20140908
  Receipt Date: 20140908
  Transmission Date: 20150326
  Serious: No
  Sender: FDA-Public Use
  Company Number: US-BRISTOL-MYERS SQUIBB COMPANY-20548434

PATIENT
  Age: 5 Decade
  Sex: Female

DRUGS (4)
  1. CYMBALTA [Suspect]
     Active Substance: DULOXETINE HYDROCHLORIDE
  2. ABILIFY [Suspect]
     Active Substance: ARIPIPRAZOLE
     Dosage: 2MG OR 5MG
  3. KLONOPIN [Suspect]
     Active Substance: CLONAZEPAM
  4. TOPAMAX [Suspect]
     Active Substance: TOPIRAMATE

REACTIONS (1)
  - Syncope [Unknown]
